FAERS Safety Report 22037602 (Version 2)
Quarter: 2024Q4

REPORT INFORMATION
  Report Type: Spontaneous
  Country: FR (occurrence: FR)
  Receive Date: 20230227
  Receipt Date: 20241123
  Transmission Date: 20250115
  Serious: Yes (Life-Threatening, Other)
  Sender: AUROBINDO
  Company Number: FR-EMA-20120425-mgevhumanwt-120629554

PATIENT
  Age: 31 Year

DRUGS (21)
  1. MELPHALAN [Suspect]
     Active Substance: MELPHALAN
     Indication: Product used for unknown indication
     Dosage: UNK (TWO CYCLES)
     Route: 065
  2. PREDNISONE [Suspect]
     Active Substance: PREDNISONE
     Indication: Product used for unknown indication
     Dosage: UNK (EIGHT CYCLES)
     Route: 065
  3. CYTARABINE [Suspect]
     Active Substance: CYTARABINE
     Indication: Hodgkin^s disease
     Dosage: UNK (ONE CYCLE)
     Route: 065
  4. ADRIAMYCIN [Suspect]
     Active Substance: DOXORUBICIN HYDROCHLORIDE
     Indication: Product used for unknown indication
     Dosage: UNK (SIX CYCLES)
     Route: 065
  5. ADRIAMYCIN [Suspect]
     Active Substance: DOXORUBICIN HYDROCHLORIDE
     Dosage: UNK (THREE CYCLES)
     Route: 065
  6. BLEOMYCIN [Suspect]
     Active Substance: BLEOMYCIN SULFATE
     Indication: Product used for unknown indication
     Dosage: UNK (SIX CYCLES)
     Route: 065
  7. MECHLORETHAMINE [Suspect]
     Active Substance: MECHLORETHAMINE
     Indication: Product used for unknown indication
     Dosage: UNK (EIGHT CYCLES)
     Route: 065
  8. CISPLATIN [Suspect]
     Active Substance: CISPLATIN
     Indication: Hodgkin^s disease
     Dosage: UNK (ESHAP CHEMOTHERAPY ADMINISTERED ONCE EVERY 3 WEEKS)
     Route: 065
  9. CYTARABINE [Suspect]
     Active Substance: CYTARABINE
     Indication: Hodgkin^s disease
     Dosage: UNK (ESHAP CHEMOTHERAPY ADMINISTERED ONCE EVERY 3 WEEKS)
     Route: 065
  10. DACARBAZINE [Suspect]
     Active Substance: DACARBAZINE
     Indication: Product used for unknown indication
     Dosage: UNK (SIX CYCLES)
     Route: 065
  11. ETOPOSIDE [Suspect]
     Active Substance: ETOPOSIDE
     Indication: Product used for unknown indication
     Dosage: UNK (ONE CYCLE)
     Route: 065
  12. ETOPOSIDE [Suspect]
     Active Substance: ETOPOSIDE
     Dosage: UNK (ESHAP CHEMOTHERAPY ADMINISTERED ONCE EVERY 3 WEEKS)
     Route: 065
  13. IFOSFAMIDE [Suspect]
     Active Substance: IFOSFAMIDE
     Indication: Product used for unknown indication
     Dosage: UNK (ONE CYCLE)
     Route: 065
  14. METHYLPREDNISOLONE [Suspect]
     Active Substance: METHYLPREDNISOLONE
     Indication: Hodgkin^s disease
     Dosage: UNK (ESHAP CHEMOTHERAPY ADMINISTERED ONCE EVERY 3 WEEKS)
     Route: 065
  15. MITOGUAZONE [Suspect]
     Active Substance: MITOGUAZONE
     Indication: Product used for unknown indication
     Dosage: UNK (ONE CYCLE)
     Route: 065
  16. NAVELBINE [Suspect]
     Active Substance: VINORELBINE TARTRATE
     Indication: Product used for unknown indication
     Dosage: UNK (ONE CYCLE)
     Route: 065
  17. PROCARBAZINE [Suspect]
     Active Substance: PROCARBAZINE
     Indication: Product used for unknown indication
     Dosage: UNK
     Route: 065
  18. REVLIMID [Suspect]
     Active Substance: LENALIDOMIDE
     Indication: Hodgkin^s disease
     Dosage: 15 MILLIGRAM, ONCE A DAY (TWO CYCLES; 15 MG)
     Route: 065
  19. VINCRISTINE [Suspect]
     Active Substance: VINCRISTINE
     Indication: Product used for unknown indication
     Dosage: UNK (EIGHT CYCLES)
     Route: 065
  20. VINDESINE [Suspect]
     Active Substance: VINDESINE
     Indication: Product used for unknown indication
     Dosage: UNK (SIX CYCLES)
     Route: 065
  21. VINDESINE [Suspect]
     Active Substance: VINDESINE
     Dosage: UNK (THREE CYCLES)
     Route: 065

REACTIONS (4)
  - Neutropenia [Recovered/Resolved]
  - Thrombocytopenia [Recovered/Resolved]
  - Hodgkin^s disease recurrent [Unknown]
  - Anaemia [Recovered/Resolved]
